FAERS Safety Report 7982141-5 (Version None)
Quarter: 2011Q4

REPORT INFORMATION
  Report Type: 
  Country: None (occurrence: None)
  Receive Date: 20111212
  Receipt Date: 20111123
  Transmission Date: 20120403
  Serious: Yes (Hospitalization)
  Sender: FDA-Public Use
  Company Number: 2011SP030602

PATIENT
  Age: 31 Year
  Sex: Female
  Weight: 68.0396 kg

DRUGS (2)
  1. NUVARING [Suspect]
     Indication: CONTRACEPTION
     Dosage: QM
     Dates: start: 20080326, end: 20090701
  2. NUVARING [Suspect]
     Indication: CONTRACEPTION
     Dosage: QM
     Dates: start: 20090225

REACTIONS (9)
  - SUBARACHNOID HAEMORRHAGE [None]
  - TRANSVERSE SINUS THROMBOSIS [None]
  - HEADACHE [None]
  - DEEP VEIN THROMBOSIS [None]
  - THYROID DISORDER [None]
  - MUSCULOSKELETAL STIFFNESS [None]
  - PARAESTHESIA [None]
  - TOOTH INFECTION [None]
  - NAUSEA [None]
